FAERS Safety Report 9516304 (Version 1)
Quarter: 2013Q1

REPORT INFORMATION
  Report Type: Spontaneous
  Country: US (occurrence: None)
  Receive Date: 20130305
  Receipt Date: 20130305
  Transmission Date: 20140127
  Serious: Yes (Hospitalization)
  Sender: FDA-Public Use
  Company Number: 163-21880-12113736

PATIENT
  Age: 76 Year
  Sex: Male
  Weight: 88.45 kg

DRUGS (12)
  1. REVLIMID (LENALIDOMIDE) (15 MILLIGRAM, CAPSULES) [Suspect]
     Indication: PLASMA CELL MYELOMA
     Dosage: 21 IN 21 D
     Route: 048
     Dates: start: 20080829
  2. DIPHENHYDRAMINE [Concomitant]
  3. DEXAMETHASONE [Concomitant]
  4. VALACYCLOVIR [Concomitant]
  5. DILTIAZEM [Concomitant]
  6. SIMVASTATIN [Concomitant]
  7. CITRUCEL [Concomitant]
  8. HYDROCHLOROTHIAZIDE [Concomitant]
  9. FISH OIL [Concomitant]
  10. METOPROLOL [Concomitant]
  11. ASPIRIN [Concomitant]
  12. VITAMIN D [Concomitant]

REACTIONS (1)
  - Localised infection [None]
